FAERS Safety Report 7510249-7 (Version None)
Quarter: 2011Q2

REPORT INFORMATION
  Report Type: 
  Country: None (occurrence: None)
  Receive Date: 20110527
  Receipt Date: 20110519
  Transmission Date: 20111010
  Serious: Yes (Other)
  Sender: FDA-Public Use
  Company Number: PHHY2011JP43723

PATIENT
  Age: 48 Year
  Sex: Male

DRUGS (9)
  1. CYCLOSPORINE [Suspect]
     Indication: GRAFT VERSUS HOST DISEASE
     Dosage: 3 MG/KG, DAILY
     Route: 042
  2. PREDNISOLONE [Suspect]
     Dosage: 0.5 MG/KG, UNK
  3. PREDNISOLONE [Suspect]
     Dosage: 0.3 MEQ/KG, UNK
  4. ITRACONAZOLE [Suspect]
     Dosage: 200 MG, DAILY
     Route: 048
  5. SULFAMETHOXAZOLE AND TRIMETHOPRIM [Suspect]
     Dosage: 600 MG, DAILY
     Route: 048
  6. METHOTREXATE [Suspect]
     Dosage: 7 MG/M2, UNK
  7. CYCLOPHOSPHAMIDE [Suspect]
     Dosage: 60 MG/KG, DAILY
  8. METHOTREXATE [Suspect]
     Dosage: 10 MG/M2, UNK
  9. CLARITHROMYCIN [Suspect]
     Dosage: 200 MG, DAILY
     Route: 048

REACTIONS (14)
  - PRODUCTIVE COUGH [None]
  - OBLITERATIVE BRONCHIOLITIS [None]
  - CHEST DISCOMFORT [None]
  - PNEUMOCYSTIS JIROVECI PNEUMONIA [None]
  - GRAFT VERSUS HOST DISEASE [None]
  - DYSPNOEA EXERTIONAL [None]
  - CHIMERISM [None]
  - BLOOD CREATININE INCREASED [None]
  - DYSPNOEA [None]
  - SICCA SYNDROME [None]
  - RENAL IMPAIRMENT [None]
  - NOCARDIOSIS [None]
  - FUNGAL INFECTION [None]
  - PSEUDOMONAS INFECTION [None]
